FAERS Safety Report 19617754 (Version 2)
Quarter: 2021Q3

REPORT INFORMATION
  Report Type: Spontaneous
  Country: US (occurrence: US)
  Receive Date: 20210728
  Receipt Date: 20210831
  Transmission Date: 20211014
  Serious: No
  Sender: FDA-Public Use
  Company Number: US-TEVA-2021-US-1936173

PATIENT
  Sex: Female

DRUGS (1)
  1. FLUCONAZOLE REDDY LABORATORIES [Suspect]
     Active Substance: FLUCONAZOLE
     Indication: MICROSPORUM INFECTION
     Route: 065

REACTIONS (2)
  - Drug ineffective [Unknown]
  - Product use in unapproved indication [Unknown]
